FAERS Safety Report 22379991 (Version 1)
Quarter: 2023Q2

REPORT INFORMATION
  Report Type: Spontaneous
  Country: NO (occurrence: NO)
  Receive Date: 20230529
  Receipt Date: 20230529
  Transmission Date: 20230722
  Serious: Yes (Hospitalization)
  Sender: FDA-Public Use
  Company Number: None

PATIENT
  Age: 52 Year
  Sex: Female
  Weight: 61 kg

DRUGS (2)
  1. QUETIAPINE [Suspect]
     Active Substance: QUETIAPINE
     Indication: Anxiety
     Dosage: PATIENT WAS USING THE MEDICINE REGULARILY TWICE A DAY FOR 3.5 WEEKS = 75 MG /AFTER 1 WEEK
     Route: 065
     Dates: start: 202210, end: 202210
  2. QUETIAPINE [Suspect]
     Active Substance: QUETIAPINE
     Indication: Depression

REACTIONS (5)
  - Flat affect [Recovered/Resolved]
  - Vomiting [Unknown]
  - Heart rate increased [Unknown]
  - Dissociation [Recovered/Resolved]
  - Overdose [Unknown]

NARRATIVE: CASE EVENT DATE: 20221001
